FAERS Safety Report 24837053 (Version 1)
Quarter: 2025Q1

REPORT INFORMATION
  Report Type: Spontaneous
  Country: US (occurrence: None)
  Receive Date: 20250110
  Receipt Date: 20250110
  Transmission Date: 20250408
  Serious: Yes (unspecified)
  Sender: FDA-CTU
  Company Number: None

PATIENT
  Age: 67 Year
  Sex: Male
  Weight: 96.75 kg

DRUGS (5)
  1. VANCOMYCIN [Suspect]
     Active Substance: VANCOMYCIN
     Indication: Endophthalmitis
     Route: 047
     Dates: start: 20241213, end: 20241213
  2. VANCOMYCIN [Suspect]
     Active Substance: VANCOMYCIN
     Indication: Prophylaxis
  3. DEVICE [Suspect]
     Active Substance: DEVICE
  4. DEVICE [Suspect]
     Active Substance: DEVICE
  5. LOSARTAN [Concomitant]
     Active Substance: LOSARTAN

REACTIONS (8)
  - Corneal oedema [None]
  - Corneal endothelial cell loss [None]
  - Lacrimation increased [None]
  - Ocular procedural complication [None]
  - Eye irritation [None]
  - Eye pain [None]
  - Intraocular pressure increased [None]
  - Toxic anterior segment syndrome [None]

NARRATIVE: CASE EVENT DATE: 20241213
